FAERS Safety Report 8589637 (Version 3)
Quarter: 2012Q4

REPORT INFORMATION
  Report Type: 
  Country: US (occurrence: US)
  Receive Date: 20120531
  Receipt Date: 20121031
  Transmission Date: 20130627
  Serious: No
  Sender: FDA-Public Use
  Company Number: US-RB-040677-12

PATIENT
  Sex: Male
  Weight: 3.2 kg

DRUGS (3)
  1. SUBOXONE TABLETS [Suspect]
     Indication: DRUG DEPENDENCE
     Route: 064
     Dates: end: 201006
  2. SUBOXONE TABLETS [Suspect]
     Dosage: various tapered doses
     Route: 064
     Dates: start: 201006, end: 201011
  3. NICOTINE [Suspect]
     Indication: PRODUCT USED FOR UNKNOWN INDICATION
     Dosage: One pack/daily
     Route: 064
     Dates: end: 20110119

REACTIONS (2)
  - Foetal exposure during pregnancy [Recovered/Resolved]
  - No adverse event [Recovered/Resolved]
